FAERS Safety Report 4452584-5 (Version None)
Quarter: 2004Q3

REPORT INFORMATION
  Report Type: 
  Country: None (occurrence: None)
  Receive Date: 20040916
  Receipt Date: 20040909
  Transmission Date: 20050211
  Serious: Yes (Life-Threatening, Hospitalization)
  Sender: FDA-Public Use
  Company Number: 2004232891JP

PATIENT
  Age: 69 Year
  Sex: Female

DRUGS (6)
  1. CABERGOLINE [Suspect]
     Indication: PARKINSON'S DISEASE
     Dosage: SEE IMAGE
     Route: 048
     Dates: start: 20040622, end: 20040826
  2. CABERGOLINE [Suspect]
     Indication: PARKINSON'S DISEASE
     Dosage: SEE IMAGE
     Route: 048
     Dates: start: 20020501
  3. EC DOPARL (BENSERAZIDE HYDROCHLORIDE) [Concomitant]
  4. DOPS (DROXIDOPA) [Concomitant]
  5. SELEGELINE HYDROCHLORIDE [Concomitant]
  6. LANDSEN [Concomitant]

REACTIONS (3)
  - DYSKINESIA [None]
  - FEELING ABNORMAL [None]
  - RESPIRATORY DISORDER [None]
